FAERS Safety Report 19677033 (Version 2)
Quarter: 2021Q3

REPORT INFORMATION
  Report Type: Spontaneous
  Country: US (occurrence: US)
  Receive Date: 20210810
  Receipt Date: 20210828
  Transmission Date: 20211014
  Serious: Yes (Other)
  Sender: FDA-Public Use
  Company Number: US-009507513-2108USA001077

PATIENT
  Age: 72 Year
  Sex: Female

DRUGS (1)
  1. KEYTRUDA [Suspect]
     Active Substance: PEMBROLIZUMAB
     Indication: LUNG NEOPLASM MALIGNANT
     Dosage: 2 VIALS EVERY 3 WEEKS
     Route: 042
     Dates: start: 202105

REACTIONS (7)
  - Fatigue [Recovering/Resolving]
  - Drug ineffective [Unknown]
  - Therapeutic response unexpected [Unknown]
  - Haemoptysis [Recovering/Resolving]
  - Incorrect route of product administration [Unknown]
  - Musculoskeletal discomfort [Recovering/Resolving]
  - Malignant neoplasm progression [Recovering/Resolving]

NARRATIVE: CASE EVENT DATE: 2021
